FAERS Safety Report 12952195 (Version 3)
Quarter: 2018Q1

REPORT INFORMATION
  Report Type: Spontaneous
  Country: PT (occurrence: PT)
  Receive Date: 20161117
  Receipt Date: 20180309
  Transmission Date: 20180508
  Serious: Yes (Death, Life-Threatening, Hospitalization, Disabling, Congenital Anomaly)
  Sender: FDA-Public Use
  Company Number: PT-SA-2016SA206163

PATIENT
  Age: 76 Year
  Sex: Female

DRUGS (7)
  1. PENTOXIFYLLINE. [Suspect]
     Active Substance: PENTOXIFYLLINE
     Indication: PERIPHERAL ISCHAEMIA
     Route: 065
  2. SILDENAFIL CITRATE. [Suspect]
     Active Substance: SILDENAFIL CITRATE
     Indication: PERIPHERAL ISCHAEMIA
     Route: 065
  3. NIFEDIPINE. [Concomitant]
     Active Substance: NIFEDIPINE
  4. ACETYLSALICYLIC ACID [Suspect]
     Active Substance: ASPIRIN
     Indication: PERIPHERAL ISCHAEMIA
     Route: 065
  5. SIMVASTATIN. [Suspect]
     Active Substance: SIMVASTATIN
     Indication: PERIPHERAL ISCHAEMIA
     Route: 065
  6. BOSENTAN. [Concomitant]
     Active Substance: BOSENTAN
  7. ENOXAPARIN SODIUM. [Suspect]
     Active Substance: ENOXAPARIN SODIUM
     Indication: PERIPHERAL ISCHAEMIA
     Dosage: FULL DOSE
     Route: 065

REACTIONS (6)
  - Peripheral ischaemia [Unknown]
  - Necrosis [Not Recovered/Not Resolved]
  - Inappropriate schedule of drug administration [Unknown]
  - Sepsis [Fatal]
  - Drug ineffective [Unknown]
  - Disease progression [Unknown]
